FAERS Safety Report 22144592 (Version 1)
Quarter: 2023Q1

REPORT INFORMATION
  Report Type: Spontaneous
  Country: ES (occurrence: ES)
  Receive Date: 20230328
  Receipt Date: 20230328
  Transmission Date: 20230417
  Serious: Yes (Other)
  Sender: FDA-Public Use
  Company Number: ES-AEMPS-1184338

PATIENT
  Age: 58 Year
  Sex: Male
  Weight: 84 kg

DRUGS (1)
  1. LENALIDOMIDE [Suspect]
     Active Substance: LENALIDOMIDE
     Indication: Plasma cell myeloma in remission
     Dosage: 1 DOSAGE FORM, DAILY(1 TABLET DAILY FOR 21 DAYS EVERY 28 DAYS)
     Route: 048
     Dates: start: 20220315, end: 20220506

REACTIONS (5)
  - Dysphagia [Recovering/Resolving]
  - Dysphonia [Recovered/Resolved]
  - Hypoaesthesia [Recovering/Resolving]
  - Oropharyngeal pain [Recovering/Resolving]
  - Paraesthesia [Recovering/Resolving]

NARRATIVE: CASE EVENT DATE: 20220502
